FAERS Safety Report 21533475 (Version 2)
Quarter: 2022Q4

REPORT INFORMATION
  Report Type: Spontaneous
  Country: US (occurrence: US)
  Receive Date: 20221101
  Receipt Date: 20221103
  Transmission Date: 20230112
  Serious: No
  Sender: FDA-Public Use
  Company Number: US-UNITED THERAPEUTICS-UNT-2022-025292

PATIENT
  Age: 70 Year
  Sex: Male
  Weight: 83.991 kg

DRUGS (4)
  1. REMODULIN [Suspect]
     Active Substance: TREPROSTINIL
     Indication: Pulmonary arterial hypertension
     Dosage: 0.011 ?G/KG (SELF-FILLED WITH 2.1ML PER CASSETTE AT A PUMP RATE OF 22 MCL PER HR), CONTINUING
     Route: 058
     Dates: start: 20221018
  2. REMODULIN [Suspect]
     Active Substance: TREPROSTINIL
     Dosage: UNK  (SELF-FILLED WITH 2.1ML PER CASSETTE AT A PUMP RATE OF 24 MCL PER HR), CONTINUING
     Route: 058
     Dates: start: 202210
  3. SILDENAFIL [Concomitant]
     Active Substance: SILDENAFIL
     Indication: Product used for unknown indication
     Route: 065
  4. OPSUMIT [Concomitant]
     Active Substance: MACITENTAN
     Indication: Product used for unknown indication
     Route: 065

REACTIONS (7)
  - Device failure [Recovered/Resolved]
  - Device failure [Unknown]
  - Incorrect drug administration rate [Unknown]
  - Infusion site pain [Not Recovered/Not Resolved]
  - Hypersomnia [Unknown]
  - Headache [Unknown]
  - Therapy non-responder [Unknown]

NARRATIVE: CASE EVENT DATE: 20221001
